FAERS Safety Report 16987125 (Version 1)
Quarter: 2019Q4

REPORT INFORMATION
  Report Type: Spontaneous
  Country: FR (occurrence: FR)
  Receive Date: 20191102
  Receipt Date: 20191102
  Transmission Date: 20200122
  Serious: Yes (Hospitalization)
  Sender: FDA-Public Use
  Company Number: FR-TEVA-2019-FR-1130237

PATIENT
  Age: 48 Year
  Sex: Male
  Weight: 86 kg

DRUGS (5)
  1. THERALENE [Suspect]
     Active Substance: TRIMEPRAZINE
     Indication: TOXICITY TO VARIOUS AGENTS
     Dosage: UNSPECIFIED
     Route: 048
     Dates: start: 20191002, end: 20191002
  2. ZOPICLONE [Suspect]
     Active Substance: ZOPICLONE
     Indication: TOXICITY TO VARIOUS AGENTS
     Dosage: UNSPECIFIED
     Route: 048
     Dates: start: 20191002, end: 20191002
  3. ESCITALOPRAM [Suspect]
     Active Substance: ESCITALOPRAM OXALATE
     Indication: TOXICITY TO VARIOUS AGENTS
     Dosage: UNSPECIFIED
     Route: 048
     Dates: start: 20191002, end: 20191002
  4. MIRTAZAPINE. [Suspect]
     Active Substance: MIRTAZAPINE
     Indication: TOXICITY TO VARIOUS AGENTS
     Dosage: UNSPECIFIED
     Route: 048
     Dates: start: 20191002, end: 20191002
  5. ENALAPRIL (MALEATE D^) [Suspect]
     Active Substance: ENALAPRIL MALEATE
     Indication: TOXICITY TO VARIOUS AGENTS
     Dosage: UNSPECIFIED
     Route: 048
     Dates: start: 20191002, end: 20191002

REACTIONS (4)
  - Coma [Recovered/Resolved]
  - Pneumonia aspiration [Recovered/Resolved]
  - Hypotension [Recovered/Resolved]
  - Sedation [Recovered/Resolved]

NARRATIVE: CASE EVENT DATE: 20191002
